FAERS Safety Report 10069037 (Version 2)
Quarter: 2014Q2

REPORT INFORMATION
  Report Type: Spontaneous
  Country: JP (occurrence: JP)
  Receive Date: 20140409
  Receipt Date: 20140429
  Transmission Date: 20141212
  Serious: Yes (Hospitalization)
  Sender: FDA-Public Use
  Company Number: JP-B.I. PHARMACEUTICALS,INC./RIDGEFIELD-2014-BI-15173NB

PATIENT
  Sex: 0
  Weight: 56 kg

DRUGS (2)
  1. PRAZAXA [Suspect]
     Indication: ATRIAL FIBRILLATION
     Dosage: 220 MG
     Route: 048
  2. PREDONINE [Suspect]
     Indication: THROMBOCYTOPENIA
     Dosage: 5 MG
     Route: 048

REACTIONS (4)
  - Embolic stroke [Recovered/Resolved]
  - Haemorrhagic cerebral infarction [Recovered/Resolved]
  - Femur fracture [Unknown]
  - Fall [Unknown]
